FAERS Safety Report 17159509 (Version 1)
Quarter: 2019Q4

REPORT INFORMATION
  Report Type: Spontaneous
  Country: US (occurrence: US)
  Receive Date: 20191216
  Receipt Date: 20191216
  Transmission Date: 20200122
  Serious: Yes (Hospitalization)
  Sender: FDA-Public Use
  Company Number: NVSC2019US065744

PATIENT
  Sex: Male
  Weight: 160 kg

DRUGS (2)
  1. METOLAZONE. [Suspect]
     Active Substance: METOLAZONE
     Indication: FLUID RETENTION
     Dosage: 2.5 MG
     Route: 065
     Dates: start: 20191123
  2. VYNDAQEL [Suspect]
     Active Substance: TAFAMIDIS MEGLUMINE
     Indication: AMYLOIDOSIS
     Dosage: 20 MG, 4 DAILY
     Route: 048
     Dates: start: 201907

REACTIONS (5)
  - Disturbance in attention [Unknown]
  - Lethargy [Unknown]
  - Oedema peripheral [Unknown]
  - Pyrexia [Unknown]
  - Disorientation [Unknown]
